FAERS Safety Report 12594536 (Version 1)
Quarter: 2016Q3

REPORT INFORMATION
  Report Type: Spontaneous
  Country: US (occurrence: US)
  Receive Date: 20160726
  Receipt Date: 20160726
  Transmission Date: 20161109
  Serious: Yes (Other)
  Sender: FDA-Public Use
  Company Number: US-WATSON-2016-16317

PATIENT
  Age: 47 Year
  Sex: Female

DRUGS (3)
  1. RETIGABINE [Concomitant]
     Active Substance: EZOGABINE
     Indication: EPILEPSY
     Dosage: UNK
     Route: 065
  2. LAMOTRIGINE (WATSON LABORATORIES) [Suspect]
     Active Substance: LAMOTRIGINE
     Indication: EPILEPSY
     Dosage: 400 MG, DAILY
     Route: 065
  3. LEVETIRACETAM. [Concomitant]
     Active Substance: LEVETIRACETAM
     Indication: EPILEPSY
     Dosage: UNK
     Route: 065

REACTIONS (2)
  - Status epilepticus [Unknown]
  - Toxicity to various agents [Unknown]
